FAERS Safety Report 15980401 (Version 1)
Quarter: 2019Q1

REPORT INFORMATION
  Report Type: Spontaneous
  Country: US (occurrence: US)
  Receive Date: 20190122
  Receipt Date: 20190122
  Transmission Date: 20190418
  Serious: No
  Sender: FDA-Public Use
  Company Number: None

PATIENT
  Age: 55 Year
  Sex: Female

DRUGS (1)
  1. ENTYVIO [Suspect]
     Active Substance: VEDOLIZUMAB
     Dates: start: 201804

REACTIONS (2)
  - Sinusitis [None]
  - Upper respiratory tract infection [None]

NARRATIVE: CASE EVENT DATE: 20190109
